FAERS Safety Report 14448933 (Version 3)
Quarter: 2018Q1

REPORT INFORMATION
  Report Type: Spontaneous
  Country: US (occurrence: US)
  Receive Date: 20180126
  Receipt Date: 20180315
  Transmission Date: 20180509
  Serious: Yes (Other)
  Sender: FDA-Public Use
  Company Number: US-OTSUKA-2017_025559

PATIENT
  Age: 67 Year
  Sex: Female

DRUGS (2)
  1. ABILIFY [Suspect]
     Active Substance: ARIPIPRAZOLE
     Indication: PRODUCT USED FOR UNKNOWN INDICATION
     Dosage: 2.5 MG, QD
     Route: 048
  2. ABILIFY [Suspect]
     Active Substance: ARIPIPRAZOLE
     Indication: BIPOLAR DISORDER
     Dosage: UNK
     Route: 048
     Dates: start: 201003

REACTIONS (14)
  - Feeling abnormal [Unknown]
  - Nausea [Not Recovered/Not Resolved]
  - Diabetes mellitus [Unknown]
  - Personality change [Not Recovered/Not Resolved]
  - Tardive dyskinesia [Unknown]
  - Mental disorder [Unknown]
  - Malaise [Unknown]
  - Product quality issue [Unknown]
  - Drug dependence [Unknown]
  - Renal colic [Unknown]
  - Body temperature increased [Not Recovered/Not Resolved]
  - Wrong technique in product usage process [Unknown]
  - Vision blurred [Unknown]
  - Product taste abnormal [Unknown]

NARRATIVE: CASE EVENT DATE: 20171118
